FAERS Safety Report 25173188 (Version 1)
Quarter: 2025Q2

REPORT INFORMATION
  Report Type: Spontaneous
  Country: US (occurrence: US)
  Receive Date: 20250408
  Receipt Date: 20250408
  Transmission Date: 20250717
  Serious: Yes (Other)
  Sender: VERTEX
  Company Number: US-VERTEX PHARMACEUTICALS-2025-003688

PATIENT
  Sex: Female

DRUGS (1)
  1. TRIKAFTA [Suspect]
     Active Substance: ELEXACAFTOR\IVACAFTOR\TEZACAFTOR
     Indication: Cystic fibrosis
     Dosage: 2 TABS IN THE AM; 1 TAB IN THE PM
     Route: 048
     Dates: start: 20191212

REACTIONS (3)
  - Chronic hepatic failure [Unknown]
  - Respiratory failure [Unknown]
  - Anxiety [Unknown]
